FAERS Safety Report 14263033 (Version 2)
Quarter: 2018Q1

REPORT INFORMATION
  Report Type: Spontaneous
  Country: PL (occurrence: PL)
  Receive Date: 20171208
  Receipt Date: 20180131
  Transmission Date: 20180508
  Serious: Yes (Other)
  Sender: FDA-Public Use
  Company Number: PL-ELI_LILLY_AND_COMPANY-PL201711011756

PATIENT
  Age: 60 Year
  Sex: Female

DRUGS (23)
  1. DEXAVEN [Concomitant]
     Active Substance: DEXAMETHASONE
     Dosage: 4 MG, UNK
     Route: 042
     Dates: start: 20170828
  2. ONDANSETRON [Concomitant]
     Active Substance: ONDANSETRON
     Indication: PROPHYLAXIS
     Dosage: 200 MG, UNKNOWN
     Route: 042
  3. FAYTON [Concomitant]
     Indication: PROPHYLAXIS
     Dosage: 4 MG, UNKNOWN
     Route: 042
     Dates: start: 20170717
  4. ONDANSETRON [Concomitant]
     Active Substance: ONDANSETRON
     Dosage: 4 MG, UNKNOWN
     Route: 042
     Dates: start: 20170717
  5. CARBOMEDAC [Concomitant]
     Active Substance: CARBOPLATIN
     Indication: TRIPLE NEGATIVE BREAST CANCER
     Dosage: 255 UNK, UNK
     Route: 042
     Dates: start: 20170717
  6. ONDANSETRON [Concomitant]
     Active Substance: ONDANSETRON
     Dosage: 4 MG, UNKNOWN
     Route: 042
     Dates: start: 20170828
  7. GEMCITABINE HYDROCHLORIDE. [Suspect]
     Active Substance: GEMCITABINE HYDROCHLORIDE
     Indication: TRIPLE NEGATIVE BREAST CANCER
     Dosage: 1960 MG, UNKNOWN
     Route: 065
     Dates: start: 20170807
  8. GEMCITABINE HYDROCHLORIDE. [Suspect]
     Active Substance: GEMCITABINE HYDROCHLORIDE
     Dosage: 1960 MG, UNKNOWN
     Route: 042
     Dates: start: 20170828
  9. PEMBROLIZUMAB. [Suspect]
     Active Substance: PEMBROLIZUMAB
     Dosage: 200 MG, MONTHLY (1/M)
     Route: 042
     Dates: start: 20170925
  10. MAGNESIUM SULFATE. [Concomitant]
     Active Substance: MAGNESIUM SULFATE
     Dosage: 1 UNK, UNK
     Route: 065
     Dates: start: 20170807
  11. MAGNESIUM SULFATE. [Concomitant]
     Active Substance: MAGNESIUM SULFATE
     Dosage: 1 DF, UNKNOWN
     Route: 065
     Dates: start: 20170828
  12. PEMBROLIZUMAB. [Suspect]
     Active Substance: PEMBROLIZUMAB
     Indication: METASTASES TO LUNG
     Dosage: 200 MG, Q3W
     Route: 042
     Dates: start: 20170828
  13. PEMBROLIZUMAB. [Suspect]
     Active Substance: PEMBROLIZUMAB
     Dosage: 200 MG, MONTHLY (1/M)
     Route: 042
     Dates: start: 20171023
  14. MAGNESIUM SULFATE. [Concomitant]
     Active Substance: MAGNESIUM SULFATE
     Indication: PROPHYLAXIS
     Dosage: 1 UNK, UNK
     Route: 065
     Dates: start: 20170717
  15. ONDANSETRON [Concomitant]
     Active Substance: ONDANSETRON
     Dosage: 200 MG, UNKNOWN
     Route: 017
     Dates: start: 20170807
  16. GEMCITABINE HYDROCHLORIDE. [Suspect]
     Active Substance: GEMCITABINE HYDROCHLORIDE
     Dosage: 1960 UNK, UNK
     Route: 042
     Dates: start: 20170717
  17. CARBOMEDAC [Concomitant]
     Active Substance: CARBOPLATIN
     Dosage: 255 UNK, UNK
     Route: 042
     Dates: start: 20170807
  18. DEXAVEN [Concomitant]
     Active Substance: DEXAMETHASONE
     Indication: PROPHYLAXIS
     Dosage: 4 MG, UNKNOWN
     Route: 042
     Dates: start: 20170717
  19. DEXAVEN [Concomitant]
     Active Substance: DEXAMETHASONE
     Dosage: 4 MG, UNK
     Route: 042
     Dates: start: 20170807
  20. PEMBROLIZUMAB. [Suspect]
     Active Substance: PEMBROLIZUMAB
     Indication: TRIPLE NEGATIVE BREAST CANCER
     Dosage: 200 MG, Q3W
     Route: 042
     Dates: start: 20170717
  21. PEMBROLIZUMAB. [Suspect]
     Active Substance: PEMBROLIZUMAB
     Indication: METASTASES TO BONE
     Dosage: 200 MG, OTHER
     Route: 042
     Dates: start: 20170807
  22. PEMBROLIZUMAB. [Suspect]
     Active Substance: PEMBROLIZUMAB
     Dosage: 200 MG, MONTHLY (1/M)
     Route: 042
     Dates: start: 20171120
  23. CARBOMEDAC [Concomitant]
     Active Substance: CARBOPLATIN
     Dosage: 255 MG, UNKNOWN
     Route: 042
     Dates: start: 20170828

REACTIONS (8)
  - Metastases to bone [Unknown]
  - Skin discolouration [Recovering/Resolving]
  - Rash [Recovered/Resolved]
  - Diarrhoea [Recovered/Resolved]
  - Rash [Recovered/Resolved]
  - Neutrophil count decreased [Recovering/Resolving]
  - Rash generalised [Recovered/Resolved]
  - Pyrexia [Recovered/Resolved]

NARRATIVE: CASE EVENT DATE: 2017
